FAERS Safety Report 7539094-3 (Version None)
Quarter: 2011Q2

REPORT INFORMATION
  Report Type: 
  Country: None (occurrence: None)
  Receive Date: 20110610
  Receipt Date: 20011112
  Transmission Date: 20111010
  Serious: Yes (Death)
  Sender: FDA-Public Use
  Company Number: PHBS2001CA04260

PATIENT
  Sex: Male

DRUGS (15)
  1. PANTOPRAZOLE SODIUM [Concomitant]
     Dosage: 40 MG/DAY
  2. XYLOCAINE VISCOUS [Concomitant]
     Route: 048
  3. DIVALPROEX SODIUM [Concomitant]
     Dosage: 250 MG, BID
  4. ALTACE [Concomitant]
     Dosage: 2.5 MG/DAY
  5. MAALOX [Concomitant]
     Dosage: 15 ML, TID
  6. COLACE [Concomitant]
     Dosage: 100 MG, BID
  7. ENTROPHEN [Concomitant]
     Dosage: 325 MG/DAY
  8. CARDIZEM CD [Concomitant]
     Dosage: 180 MG/DAY
  9. LASIX [Concomitant]
     Dosage: 60 ML/DAY
  10. PRAVACHOL [Concomitant]
     Dosage: 40 MG/DAY
  11. CLOZAPINE [Suspect]
     Dosage: 200 MG, BID
     Dates: start: 20000119
  12. PROCYCLIDINE HYDROCHLORIDE 2MG TAB [Concomitant]
     Dosage: 5 MG/DAY
  13. DOMPERIDONE [Concomitant]
     Dosage: 10 MG/DAY
  14. ATROVENT [Concomitant]
  15. SENOKOT [Concomitant]
     Dosage: 17.5 MG, BID

REACTIONS (1)
  - CARDIAC DISORDER [None]
